FAERS Safety Report 17858578 (Version 2)
Quarter: 2020Q2

REPORT INFORMATION
  Report Type: Report from Study
  Country: None (occurrence: US)
  Receive Date: 20200604
  Receipt Date: 20200605
  Transmission Date: 20200714
  Serious: No
  Sender: FDA-Public Use
  Company Number: US-US WORLDMEDS, LLC-USW201910-002082

PATIENT
  Age: 88 Year
  Sex: Male

DRUGS (9)
  1. APOKYN [Suspect]
     Active Substance: APOMORPHINE HYDROCHLORIDE
     Indication: PARKINSON^S DISEASE
     Dosage: TITRATING DOSE
     Route: 058
     Dates: start: 20190916
  2. SYNTHROID [Concomitant]
     Active Substance: LEVOTHYROXINE SODIUM
  3. RIVASTIGMINE. [Concomitant]
     Active Substance: RIVASTIGMINE
  4. SELEGILINE [Concomitant]
     Active Substance: SELEGILINE
  5. SINEMET [Concomitant]
     Active Substance: CARBIDOPA\LEVODOPA
  6. CYANOCABALAMIN [Concomitant]
  7. ENTACAPONE. [Concomitant]
     Active Substance: ENTACAPONE
  8. VITAMIN B12 [Concomitant]
     Active Substance: CYANOCOBALAMIN
  9. ASA [Concomitant]
     Active Substance: ASPIRIN

REACTIONS (1)
  - Hallucinations, mixed [Recovered/Resolved]

NARRATIVE: CASE EVENT DATE: 201910
